FAERS Safety Report 12204452 (Version 1)
Quarter: 2016Q1

REPORT INFORMATION
  Report Type: Spontaneous
  Country: FI (occurrence: FI)
  Receive Date: 20160323
  Receipt Date: 20160323
  Transmission Date: 20160526
  Serious: Yes (Hospitalization, Other)
  Sender: FDA-Public Use
  Company Number: FI-ASTELLAS-2016US009726

PATIENT
  Sex: Female

DRUGS (1)
  1. BETMIGA [Suspect]
     Active Substance: MIRABEGRON
     Indication: HYPERTONIC BLADDER
     Dosage: 50 MG, (1X1) ONCE DAILY
     Route: 065

REACTIONS (4)
  - Renal failure [Unknown]
  - Drug ineffective [Unknown]
  - Neuralgia [Unknown]
  - Biliary tract disorder [Unknown]
